FAERS Safety Report 16668573 (Version 1)
Quarter: 2019Q3

REPORT INFORMATION
  Report Type: Spontaneous
  Country: US (occurrence: US)
  Receive Date: 20190805
  Receipt Date: 20190805
  Transmission Date: 20191004
  Serious: Yes (Other)
  Sender: FDA-Public Use
  Company Number: US-PFIZER INC-2019332496

PATIENT
  Age: 39 Year
  Sex: Male
  Weight: 99.77 kg

DRUGS (1)
  1. VIAGRA [Suspect]
     Active Substance: SILDENAFIL CITRATE
     Dosage: 25 MG, AS NEEDED (1 TABLET BY ORAL ROUTE EVERY DAY AS NEEDED APPROXIMATELY 1 HOURBEFORE SEXUAL ACTI)
     Route: 048

REACTIONS (1)
  - Myocardial infarction [Recovering/Resolving]
